FAERS Safety Report 4551872-1 (Version None)
Quarter: 2005Q1

REPORT INFORMATION
  Report Type: 
  Country: None (occurrence: None)
  Receive Date: 20050113
  Receipt Date: 20020611
  Transmission Date: 20050727
  Serious: Yes (Hospitalization)
  Sender: FDA-Public Use
  Company Number: JP-ABBOTT-02P-087-0194506-00

PATIENT
  Age: 78 Year
  Sex: Male

DRUGS (2)
  1. LIPANTIL [Suspect]
     Indication: HYPERLIPIDAEMIA
     Route: 048
     Dates: start: 20001109, end: 20020524
  2. NITRENDIPINE [Concomitant]
     Dates: start: 20010701

REACTIONS (5)
  - CHROMATURIA [None]
  - HEPATIC FUNCTION ABNORMAL [None]
  - HEPATITIS B ANTIBODY POSITIVE [None]
  - HEPATOMEGALY [None]
  - JAUNDICE [None]
